FAERS Safety Report 4505811-X (Version None)
Quarter: 2004Q4

REPORT INFORMATION
  Report Type: 
  Country: None (occurrence: None)
  Receive Date: 20041119
  Receipt Date: 20041108
  Transmission Date: 20050328
  Serious: Yes (Hospitalization)
  Sender: FDA-Public Use
  Company Number: JP-JNJFOC-20041101830

PATIENT
  Age: 53 Year
  Sex: Female

DRUGS (7)
  1. LEVAQUIN [Suspect]
     Indication: DRUG USE FOR UNKNOWN INDICATION
  2. CEA-TRICOM [Suspect]
     Indication: COLON CANCER
     Dosage: 1.2X10ES PFU SOLUTION FOR INJECTION
     Route: 023
  3. TAXOTERE [Suspect]
     Indication: COLON CANCER
     Dosage: 30 MG/M**2 EVERY WEEK
     Route: 042
     Dates: end: 20041014
  4. SARGRAMOSTIM [Suspect]
     Indication: COLON CANCER
     Route: 058
     Dates: start: 20040914, end: 20041010
  5. OXYCONTIN [Suspect]
     Indication: DRUG USE FOR UNKNOWN INDICATION
  6. COUMADIN [Concomitant]
     Indication: DRUG USE FOR UNKNOWN INDICATION
  7. DECADRON [Concomitant]

REACTIONS (3)
  - DIARRHOEA [None]
  - OEDEMA PERIPHERAL [None]
  - PAIN IN EXTREMITY [None]
